FAERS Safety Report 7507477-3 (Version None)
Quarter: 2011Q2

REPORT INFORMATION
  Report Type: 
  Country: None (occurrence: None)
  Receive Date: 20110526
  Receipt Date: 20110215
  Transmission Date: 20111010
  Serious: No
  Sender: FDA-Public Use
  Company Number: US-MYLANLABS-2011S1003319

PATIENT
  Age: 53 Year
  Sex: Male

DRUGS (2)
  1. VALACYCLOVIR HYDROCHLORIDE [Suspect]
     Indication: HERPES ZOSTER
     Route: 048
     Dates: start: 20110213
  2. VALACYCLOVIR HYDROCHLORIDE [Suspect]
     Indication: ORAL HERPES
     Route: 048
     Dates: start: 20110213

REACTIONS (1)
  - DIZZINESS [None]
